FAERS Safety Report 7201914-X (Version None)
Quarter: 2010Q4

REPORT INFORMATION
  Report Type: 
  Country: None (occurrence: None)
  Receive Date: 20101229
  Receipt Date: 20101228
  Transmission Date: 20110411
  Serious: Yes (Life-Threatening, Hospitalization)
  Sender: FDA-Public Use
  Company Number: FR-PFIZER INC-2010174171

PATIENT
  Age: 21 Year
  Sex: Female

DRUGS (2)
  1. AMLOR [Suspect]
     Dosage: 100 MG, SINGLE
     Dates: start: 20100723, end: 20100723
  2. TEGRETOL [Suspect]
     Dosage: 36 DF, SINGLE
     Dates: start: 20100723, end: 20100723

REACTIONS (3)
  - DEPRESSED LEVEL OF CONSCIOUSNESS [None]
  - HYPOTENSION [None]
  - POISONING DELIBERATE [None]
